FAERS Safety Report 8113581-1 (Version None)
Quarter: 2012Q1

REPORT INFORMATION
  Report Type: 
  Country: None (occurrence: None)
  Receive Date: 20120203
  Receipt Date: 20120130
  Transmission Date: 20120608
  Serious: Yes (Other)
  Sender: FDA-Public Use
  Company Number: US-TEVA-320663USA

PATIENT
  Age: 19 Year
  Sex: Female

DRUGS (1)
  1. AMPHETAMINE AND DEXTROAMPHETAMINE SALTS [Suspect]
     Indication: INTENTIONAL OVERDOSE
     Dosage: 30 TABLETS
     Route: 048

REACTIONS (4)
  - INTENTIONAL OVERDOSE [None]
  - STRESS CARDIOMYOPATHY [None]
  - DYSPNOEA [None]
  - CHEST PAIN [None]
